FAERS Safety Report 18903191 (Version 1)
Quarter: 2021Q1

REPORT INFORMATION
  Report Type: Spontaneous
  Country: US (occurrence: US)
  Receive Date: 20210217
  Receipt Date: 20210217
  Transmission Date: 20210420
  Serious: Yes (Hospitalization, Other)
  Sender: FDA-Public Use
  Company Number: US-MYLANLABS-2021M1009810

PATIENT
  Age: 59 Year
  Sex: Female

DRUGS (12)
  1. OCTREOTIDE. [Suspect]
     Active Substance: OCTREOTIDE
     Dosage: 150 MICROGRAM, QH
     Route: 065
  2. MITOMYCIN. [Concomitant]
     Active Substance: MITOMYCIN
     Dosage: UNK
  3. OCTREOTIDE. [Suspect]
     Active Substance: OCTREOTIDE
     Dosage: 300 MICROGRAM, QH
     Route: 065
  4. OCTREOTIDE. [Suspect]
     Active Substance: OCTREOTIDE
     Dosage: 150 MICROGRAM, Q8H
     Route: 058
  5. OCTREOTIDE. [Suspect]
     Active Substance: OCTREOTIDE
     Indication: CARCINOID SYNDROME
     Dosage: 500 MICROGRAM, QH
     Route: 065
  6. MILRINONE [Concomitant]
     Active Substance: MILRINONE
     Dosage: UNK
  7. OCTREOTIDE. [Suspect]
     Active Substance: OCTREOTIDE
     Dosage: 60 MILLIGRAM, MONTHLY
     Route: 065
  8. OCTREOTIDE. [Suspect]
     Active Substance: OCTREOTIDE
     Dosage: 50 MICROGRAM, QH
  9. DOBUTAMINE [Suspect]
     Active Substance: DOBUTAMINE HYDROCHLORIDE
     Indication: CARCINOID SYNDROME
     Dosage: UNK
  10. VASOPRESSIN. [Suspect]
     Active Substance: VASOPRESSIN
     Indication: CARDIOGENIC SHOCK
     Dosage: UNK
  11. NITROPRUSSIDE [Concomitant]
     Active Substance: NITROPRUSSIDE
     Dosage: UNK
  12. DOXORUBICIN [Concomitant]
     Active Substance: DOXORUBICIN
     Dosage: UNK

REACTIONS (15)
  - Delirium [Unknown]
  - Tumour necrosis [Unknown]
  - Intensive care unit acquired weakness [Unknown]
  - Hypoperfusion [Unknown]
  - Cardiac failure [Unknown]
  - Carcinoid crisis [Recovered/Resolved]
  - Akinesia [Unknown]
  - Vasoconstriction [Unknown]
  - Troponin increased [Unknown]
  - Small intestinal obstruction [Unknown]
  - Condition aggravated [Unknown]
  - Upper gastrointestinal haemorrhage [Unknown]
  - Renal failure [Unknown]
  - Cardiogenic shock [Unknown]
  - Hypokinesia [Unknown]
